FAERS Safety Report 9391735 (Version 4)
Quarter: 2013Q3

REPORT INFORMATION
  Report Type: Spontaneous
  Country: JP (occurrence: JP)
  Receive Date: 20130709
  Receipt Date: 20130819
  Transmission Date: 20140515
  Serious: Yes (Life-Threatening, Hospitalization)
  Sender: FDA-Public Use
  Company Number: JP-GLAXOSMITHKLINE-B0905662A

PATIENT
  Age: 39 Year
  Sex: Male

DRUGS (9)
  1. LAMICTAL [Suspect]
     Indication: BIPOLAR I DISORDER
     Dosage: 25MG ALTERNATE DAYS
     Route: 048
     Dates: start: 20130508, end: 20130521
  2. LAMICTAL [Suspect]
     Indication: BIPOLAR I DISORDER
     Dosage: 25MG PER DAY
     Route: 048
     Dates: start: 20130522, end: 20130604
  3. LAMICTAL [Suspect]
     Indication: BIPOLAR I DISORDER
     Dosage: 25MG TWICE PER DAY
     Route: 048
     Dates: start: 20130605, end: 20130618
  4. LIMAS [Suspect]
     Indication: BIPOLAR DISORDER
     Route: 048
     Dates: start: 20130327
  5. LIMAS [Suspect]
     Indication: BIPOLAR DISORDER
     Route: 048
  6. VALERIN [Concomitant]
     Dosage: 200MG TWICE PER DAY
     Route: 048
     Dates: start: 201210, end: 201210
  7. VALERIN [Concomitant]
     Dosage: 400MG TWICE PER DAY
     Route: 048
     Dates: start: 201211, end: 20130521
  8. VALERIN [Concomitant]
     Route: 048
     Dates: start: 20130522, end: 20130604
  9. VALERIN [Concomitant]
     Dosage: 200MG TWICE PER DAY
     Route: 048
     Dates: start: 20130605

REACTIONS (2)
  - Stevens-Johnson syndrome [Recovering/Resolving]
  - Drug reaction with eosinophilia and systemic symptoms [Unknown]
